FAERS Safety Report 4610511-1 (Version None)
Quarter: 2005Q2

REPORT INFORMATION
  Report Type: 
  Country: None (occurrence: None)
  Receive Date: 20050301
  Receipt Date: 20050125
  Transmission Date: 20051028
  Serious: No
  Sender: FDA-Public Use
  Company Number: WAES 0501USA03872

PATIENT
  Age: 73 Year
  Sex: Female

DRUGS (1)
  1. ZETIA [Suspect]
     Indication: HYPERCHOLESTEROLAEMIA
     Dosage: 10 MG/ DAILY/ PO
     Route: 048
     Dates: start: 20030101

REACTIONS (2)
  - CONSTIPATION [None]
  - MUSCLE SPASMS [None]
